FAERS Safety Report 7061097-6 (Version None)
Quarter: 2010Q4

REPORT INFORMATION
  Report Type: 
  Country: None (occurrence: None)
  Receive Date: 20101026
  Receipt Date: 20101018
  Transmission Date: 20110411
  Serious: Yes (Death, Other)
  Sender: FDA-Public Use
  Company Number: IN-PFIZER INC-2010135255

PATIENT
  Age: 35 Year
  Sex: Female

DRUGS (1)
  1. FLUCONAZOLE [Suspect]
     Indication: ORAL CANDIDIASIS
     Dosage: 100MG/DAY
     Route: 065

REACTIONS (3)
  - DRUG RESISTANCE [None]
  - PYREXIA [None]
  - SEPTIC SHOCK [None]
